FAERS Safety Report 10048849 (Version 1)
Quarter: 2014Q1

REPORT INFORMATION
  Report Type: Spontaneous
  Country: US (occurrence: None)
  Receive Date: 20140327
  Receipt Date: 20140327
  Transmission Date: 20141002
  Serious: Yes (Hospitalization)
  Sender: FDA-Public Use
  Company Number: UTC-045522

PATIENT
  Age: 35 Year
  Sex: Female
  Weight: 70 kg

DRUGS (3)
  1. REMODULIN [Suspect]
     Indication: PULMONARY ARTERIAL HYPERTENSION
     Dosage: 51.84UG/KG (0.036 UG/KG, 1 IN 1 MIN) SUBCUTANEOUS
     Route: 058
     Dates: start: 20120221
  2. REVATIO (SILDENAFIL CITRATE) [Concomitant]
  3. COUMADIN (WARFARIN SODIUM) [Concomitant]

REACTIONS (2)
  - Dyspnoea [None]
  - Infusion site pain [None]
